FAERS Safety Report 6502079-X (Version None)
Quarter: 2009Q4

REPORT INFORMATION
  Report Type: 
  Country: None (occurrence: None)
  Receive Date: 20091214
  Receipt Date: 20091202
  Transmission Date: 20100525
  Serious: Yes (Life-Threatening)
  Sender: FDA-Public Use
  Company Number: A-JP2009-31437

PATIENT
  Age: 42 Year
  Sex: Female
  Weight: 61 kg

DRUGS (11)
  1. TRACLEER [Suspect]
     Indication: PULMONARY ARTERIAL HYPERTENSION
     Dosage: SEE IMAGE
     Route: 048
     Dates: start: 20080408, end: 20080424
  2. TRACLEER [Suspect]
     Indication: PULMONARY ARTERIAL HYPERTENSION
     Dosage: SEE IMAGE
     Route: 048
     Dates: start: 20080520, end: 20080527
  3. TRACLEER [Suspect]
     Indication: PULMONARY ARTERIAL HYPERTENSION
     Dosage: SEE IMAGE
     Route: 048
     Dates: start: 20080528, end: 20080616
  4. TRACLEER [Suspect]
     Indication: PULMONARY ARTERIAL HYPERTENSION
     Dosage: SEE IMAGE
     Route: 048
     Dates: start: 20080617, end: 20080623
  5. TRACLEER [Suspect]
     Indication: PULMONARY ARTERIAL HYPERTENSION
     Dosage: SEE IMAGE
     Route: 048
     Dates: start: 20080624
  6. WARFARIN POTASSIUM         (WARFARIN POTASSIUM) [Suspect]
  7. AMLODIPIN          (AMLODIPINE BESILATE) [Suspect]
  8. PREDNISOLONE [Concomitant]
  9. RABEPRAZOLE SODIUM [Concomitant]
  10. ALFACALCIDOL (ALFACALCIDOL) [Concomitant]
  11. SULFAMETHOXAZOLE AND TRIMETHOPRIM [Concomitant]

REACTIONS (6)
  - AGRANULOCYTOSIS [None]
  - DISEASE PROGRESSION [None]
  - DRUG INTERACTION [None]
  - LIVER DISORDER [None]
  - PULMONARY ARTERIAL HYPERTENSION [None]
  - REBOUND EFFECT [None]
